FAERS Safety Report 5368625-7 (Version None)
Quarter: 2007Q2

REPORT INFORMATION
  Report Type: 
  Country: None (occurrence: None)
  Receive Date: 20070621
  Receipt Date: 20070621
  Transmission Date: 20071010
  Serious: No
  Sender: FDA-Public Use
  Company Number: None

PATIENT
  Sex: Female
  Weight: 77.2 kg

DRUGS (1)
  1. FEMARA [Suspect]
     Dosage: 67.5 MG

REACTIONS (5)
  - ANXIETY [None]
  - DEPRESSION [None]
  - INSOMNIA [None]
  - MEMORY IMPAIRMENT [None]
  - METASTASIS [None]
